FAERS Safety Report 20363036 (Version 1)
Quarter: 2022Q1

REPORT INFORMATION
  Report Type: Spontaneous
  Country: RU (occurrence: RU)
  Receive Date: 20220121
  Receipt Date: 20220121
  Transmission Date: 20220423
  Serious: Yes (Hospitalization)
  Sender: FDA-Public Use
  Company Number: RU-STRIDES ARCOLAB LIMITED-2022SP000581

PATIENT
  Age: 72 Year
  Sex: Female

DRUGS (7)
  1. OSELTAMIVIR [Suspect]
     Active Substance: OSELTAMIVIR
     Indication: COVID-19
     Dosage: 75 MILLIGRAM PER DAY
     Route: 065
  2. DIPYRONE [Concomitant]
     Active Substance: DIPYRONE
     Indication: Evidence based treatment
     Dosage: UNK, BY HER OWN
     Route: 065
  3. DIPHENHYDRAMINE [Concomitant]
     Active Substance: DIPHENHYDRAMINE
     Indication: Evidence based treatment
     Dosage: UNK, BY HER OWN
     Route: 065
  4. AMLODIPINE [Concomitant]
     Active Substance: AMLODIPINE BESYLATE
     Indication: Hypertension
     Dosage: 5 MILLIGRAM PER DAY
     Route: 065
  5. TELMISARTAN [Concomitant]
     Active Substance: TELMISARTAN
     Indication: Hypertension
     Dosage: 40 MILLIGRAM PER DAY
     Route: 065
  6. ASPIRIN [Concomitant]
     Active Substance: ASPIRIN
     Indication: Hypertension
     Dosage: 50 MILLIGRAM PER DAY
     Route: 065
  7. ATORVASTATIN [Concomitant]
     Active Substance: ATORVASTATIN
     Indication: Hypertension
     Dosage: 20 MILLIGRAM PER DAY
     Route: 065

REACTIONS (4)
  - Electrocardiogram J wave [Recovered/Resolved]
  - Electrolyte imbalance [Recovered/Resolved]
  - Cardiomyopathy [Recovered/Resolved]
  - Off label use [Unknown]
